FAERS Safety Report 12918408 (Version 2)
Quarter: 2016Q4

REPORT INFORMATION
  Report Type: Spontaneous
  Country: FR (occurrence: FR)
  Receive Date: 20161107
  Receipt Date: 20161121
  Transmission Date: 20170207
  Serious: Yes (Life-Threatening)
  Sender: FDA-Public Use
  Company Number: FR-PFIZER INC-2016502834

PATIENT
  Age: 64 Year
  Sex: Male
  Weight: 73 kg

DRUGS (2)
  1. CARBOPLATINE HOSPIRA [Suspect]
     Active Substance: CARBOPLATIN
     Indication: LUNG SQUAMOUS CELL CARCINOMA STAGE 0
     Dosage: 480 MG, CYCLIC
     Route: 042
     Dates: start: 20160113, end: 20160203
  2. NAVELBINE [Suspect]
     Active Substance: VINORELBINE TARTRATE
     Indication: LARYNGEAL SQUAMOUS CELL CARCINOMA
     Dosage: 55 MG, CYCLIC
     Route: 042
     Dates: start: 20160113, end: 20160203

REACTIONS (4)
  - Thrombocytopenia [Recovering/Resolving]
  - Dyspnoea exertional [Recovered/Resolved]
  - Haemoptysis [Recovered/Resolved]
  - Cough [Recovered/Resolved]

NARRATIVE: CASE EVENT DATE: 20160113
